FAERS Safety Report 6726488-9 (Version None)
Quarter: 2010Q2

REPORT INFORMATION
  Report Type: 
  Country: None (occurrence: None)
  Receive Date: 20100514
  Receipt Date: 20100503
  Transmission Date: 20101027
  Serious: Yes (Other)
  Sender: FDA-Public Use
  Company Number: JP-ROCHE-666775

PATIENT
  Age: 28 Year
  Sex: Female

DRUGS (4)
  1. CELLCEPT [Suspect]
     Indication: ACUTE GRAFT VERSUS HOST DISEASE
     Dosage: INITIAL DOSE: 1500 MG, MAX DOSE: 1500 MG/DAY, ACCUMULATIVE DOSE:16,500 MG, TOTAL DOSE: 386,750 MG.
     Route: 048
  2. TACROLIMUS [Suspect]
     Indication: PROPHYLAXIS AGAINST GRAFT VERSUS HOST DISEASE
     Route: 065
  3. CYCLOSPORINE [Suspect]
     Indication: ACUTE GRAFT VERSUS HOST DISEASE
     Route: 065
  4. METHYLPREDNISOLONE 4MG TAB [Suspect]
     Indication: ACUTE GRAFT VERSUS HOST DISEASE
     Route: 065

REACTIONS (3)
  - CARDIOMYOPATHY [None]
  - SEPSIS [None]
  - SYSTEMIC MYCOSIS [None]
